FAERS Safety Report 5389866-9 (Version None)
Quarter: 2007Q3

REPORT INFORMATION
  Report Type: 
  Country: None (occurrence: None)
  Receive Date: 20070718
  Receipt Date: 20070710
  Transmission Date: 20080115
  Serious: Yes (Other)
  Sender: FDA-Public Use
  Company Number: PHBS2007BR11869

PATIENT
  Age: 42 Year
  Sex: Male
  Weight: 90 kg

DRUGS (1)
  1. DIOVAN HCT [Suspect]
     Indication: HYPERTENSION
     Dosage: 0.5 DF, UNK
     Route: 048

REACTIONS (9)
  - BLOOD PRESSURE INCREASED [None]
  - CONDITION AGGRAVATED [None]
  - EYELID DISORDER [None]
  - EYELID IRRITATION [None]
  - FUNGAL SKIN INFECTION [None]
  - HEADACHE [None]
  - SKIN BURNING SENSATION [None]
  - SKIN DEPIGMENTATION [None]
  - SKIN FISSURES [None]
